FAERS Safety Report 23232551 (Version 2)
Quarter: 2024Q2

REPORT INFORMATION
  Report Type: Report from Study
  Country: CA (occurrence: CA)
  Receive Date: 20231128
  Receipt Date: 20240523
  Transmission Date: 20240716
  Serious: Yes (Other)
  Sender: FDA-Public Use
  Company Number: CA-JNJFOC-20231167731

PATIENT
  Age: 46 Year
  Sex: Female

DRUGS (2)
  1. REMICADE [Suspect]
     Active Substance: INFLIXIMAB
     Indication: Crohn^s disease
     Route: 042
     Dates: start: 20111220
  2. REMICADE [Suspect]
     Active Substance: INFLIXIMAB
     Dosage: ON 15-MAY-2024, THE PATIENT HAD RECEIVED 85TH INFLIXIMAB INFUSION AT DOSE OF 1000 MG?EXPIRY: /SEP/20
     Route: 042

REACTIONS (2)
  - Intestinal stenosis [Not Recovered/Not Resolved]
  - COVID-19 [Recovered/Resolved]

NARRATIVE: CASE EVENT DATE: 20231024
